FAERS Safety Report 9006824 (Version 1)
Quarter: 2013Q1

REPORT INFORMATION
  Report Type: Report from Study
  Country: DE (occurrence: DE)
  Receive Date: 20130110
  Receipt Date: 20130110
  Transmission Date: 20140127
  Serious: Yes (Death, Other)
  Sender: FDA-Public Use
  Company Number: DE-ROCHE-1174486

PATIENT
  Sex: 0

DRUGS (1)
  1. ALTEPLASE [Suspect]
     Indication: PRODUCT USED FOR UNKNOWN INDICATION
     Route: 042

REACTIONS (15)
  - Interventricular septum rupture [Fatal]
  - Cardiogenic shock [Fatal]
  - Blood pressure decreased [Unknown]
  - Pulmonary oedema [Unknown]
  - Bradycardia [Unknown]
  - Atrioventricular block [Unknown]
  - Atrial fibrillation [Unknown]
  - Rhythm idioventricular [Unknown]
  - Ventricular tachycardia [Unknown]
  - Ventricular fibrillation [Unknown]
  - Pericarditis [Unknown]
  - Angina pectoris [Unknown]
  - Infarction [Unknown]
  - Haemorrhage [Unknown]
  - Chest pain [Unknown]
